FAERS Safety Report 5564628-8 (Version None)
Quarter: 2007Q4

REPORT INFORMATION
  Report Type: 
  Country: None (occurrence: None)
  Receive Date: 20071218
  Receipt Date: 20071206
  Transmission Date: 20080405
  Serious: Yes (Hospitalization, Other)
  Sender: FDA-Public Use
  Company Number: US-AMGEN-STX252756

PATIENT
  Sex: Female
  Weight: 67.6 kg

DRUGS (7)
  1. ENBREL [Suspect]
     Indication: PYODERMA GANGRENOSUM
     Route: 058
     Dates: start: 20070521
  2. FOSAMAX [Concomitant]
     Route: 065
  3. PREDNISONE [Concomitant]
     Route: 065
  4. PREDNISONE [Concomitant]
  5. PREDNISONE [Concomitant]
     Route: 048
  6. VITAMIN D [Concomitant]
     Route: 065
  7. CALCIUM [Concomitant]
     Route: 065

REACTIONS (9)
  - ANAEMIA [None]
  - HEADACHE [None]
  - HYPOALBUMINAEMIA [None]
  - HYPOPROTEINAEMIA [None]
  - NASAL SEPTUM DEVIATION [None]
  - NASAL TURBINATE ABNORMALITY [None]
  - PYREXIA [None]
  - SINUSITIS [None]
  - STAPHYLOCOCCAL INFECTION [None]
